FAERS Safety Report 20088518 (Version 2)
Quarter: 2021Q4

REPORT INFORMATION
  Report Type: Report from Study
  Country: CO (occurrence: CO)
  Receive Date: 20211119
  Receipt Date: 20211207
  Transmission Date: 20220303
  Serious: Yes (Hospitalization, Other)
  Sender: FDA-Public Use
  Company Number: CO-ABBVIE-21K-036-4166369-00

PATIENT
  Sex: Male

DRUGS (2)
  1. ZEMPLAR [Suspect]
     Active Substance: PARICALCITOL
     Indication: Hyperparathyroidism secondary
     Dosage: 5 MICROGRAMS POSTDYALISIS
     Route: 042
     Dates: start: 20170927, end: 20210323
  2. ZEMPLAR [Suspect]
     Active Substance: PARICALCITOL
     Indication: Chronic kidney disease

REACTIONS (12)
  - Device related infection [Not Recovered/Not Resolved]
  - Bacterial infection [Recovering/Resolving]
  - Amnesia [Recovering/Resolving]
  - Dysuria [Not Recovered/Not Resolved]
  - Alcohol poisoning [Not Recovered/Not Resolved]
  - Dizziness [Not Recovered/Not Resolved]
  - Incoherent [Recovering/Resolving]
  - Mental disorder [Recovering/Resolving]
  - Emotional distress [Recovering/Resolving]
  - Chondropathy [Not Recovered/Not Resolved]
  - Arthralgia [Not Recovered/Not Resolved]
  - Gait disturbance [Not Recovered/Not Resolved]

NARRATIVE: CASE EVENT DATE: 20210101
